FAERS Safety Report 7202101-1 (Version None)
Quarter: 2010Q4

REPORT INFORMATION
  Report Type: 
  Country: None (occurrence: None)
  Receive Date: 20101216
  Receipt Date: 20100924
  Transmission Date: 20110411
  Serious: Yes (Other)
  Sender: FDA-Public Use
  Company Number: DSA_44027_2010

PATIENT
  Sex: Male

DRUGS (6)
  1. XENAZINE [Suspect]
     Indication: HUNTINGTON'S DISEASE
     Dosage: 12.5 MG TID ORAL, DF ORAL
     Route: 048
     Dates: end: 20100923
  2. XENAZINE [Suspect]
     Indication: PARKINSONISM
     Dosage: 12.5 MG TID ORAL, DF ORAL
     Route: 048
     Dates: end: 20100923
  3. ZYPREXA [Concomitant]
  4. LEXAPRO [Concomitant]
  5. AMANTADINE [Concomitant]
  6. CHLOLESTYRAMINE [Concomitant]

REACTIONS (4)
  - DISEASE PROGRESSION [None]
  - FLAT AFFECT [None]
  - HUNTINGTON'S DISEASE [None]
  - PARKINSONISM [None]
